FAERS Safety Report 6411221-0 (Version None)
Quarter: 2009Q4

REPORT INFORMATION
  Report Type: 
  Country: None (occurrence: None)
  Receive Date: 20091020
  Receipt Date: 20091008
  Transmission Date: 20100525
  Serious: Yes (Death)
  Sender: FDA-Public Use
  Company Number: 007762

PATIENT
  Age: 73 Year
  Sex: Male

DRUGS (5)
  1. PLETAL [Suspect]
     Indication: ARTERIOSCLEROSIS OBLITERANS
     Dosage: 50 MG, QD ORAL
     Route: 048
     Dates: start: 20080516, end: 20090126
  2. ANTIDIABETIC AGENTS (ANTIDIABETIC AGENTS) [Concomitant]
  3. NOVOLIN N [Concomitant]
  4. EPOGIN (EPOETIN BETA (GENETICAL RECOMBINATION)) [Concomitant]
  5. KREMEZIN (SPHERICAL ABSORBENT COAL) [Concomitant]

REACTIONS (1)
  - DEATH [None]
